FAERS Safety Report 13046979 (Version 1)
Quarter: 2016Q4

REPORT INFORMATION
  Report Type: Spontaneous
  Country: AU (occurrence: AU)
  Receive Date: 20161220
  Receipt Date: 20161220
  Transmission Date: 20170207
  Serious: Yes (Other)
  Sender: FDA-Public Use
  Company Number: ALCN2016AU009028

PATIENT
  Age: 68 Year
  Sex: Female

DRUGS (3)
  1. DEXAMETHASONE. [Suspect]
     Active Substance: DEXAMETHASONE
     Indication: SCLERITIS
     Dosage: UNK
     Route: 047
  2. CYCLOPHOSPHAMIDE. [Suspect]
     Active Substance: CYCLOPHOSPHAMIDE
     Indication: SCLERITIS
     Dosage: 1 DF, BID
     Route: 048
  3. PREDNISONE. [Suspect]
     Active Substance: PREDNISONE
     Indication: SCLERITIS
     Dosage: 1 DF, QD
     Route: 048

REACTIONS (8)
  - Panophthalmitis [Unknown]
  - Corneal infiltrates [Unknown]
  - Visual acuity reduced [Unknown]
  - Ocular discomfort [Unknown]
  - Corneal epithelium defect [Unknown]
  - Eye inflammation [Unknown]
  - Hypopyon [Unknown]
  - Keratitis fungal [Unknown]
